FAERS Safety Report 11369896 (Version 1)
Quarter: 2015Q3

REPORT INFORMATION
  Report Type: Spontaneous
  Country: US (occurrence: US)
  Receive Date: 20150812
  Receipt Date: 20150812
  Transmission Date: 20151125
  Serious: No
  Sender: FDA-Public Use
  Company Number: US-JNJFOC-20150720951

PATIENT
  Sex: Female

DRUGS (1)
  1. INVOKANA [Suspect]
     Active Substance: CANAGLIFLOZIN
     Indication: PRODUCT USED FOR UNKNOWN INDICATION
     Dosage: PATIENT WAS PRESCRIBED INVOKANA 300 MG BUT THE DOCTOR GAVE HER 100 MG SAMPLES TO TAKE 3 TIMES A DAY
     Route: 065

REACTIONS (2)
  - Drug prescribing error [Unknown]
  - Weight decreased [Unknown]
